FAERS Safety Report 5357237-7 (Version None)
Quarter: 2007Q2

REPORT INFORMATION
  Report Type: 
  Country: None (occurrence: None)
  Receive Date: 20070612
  Receipt Date: 20070601
  Transmission Date: 20071010
  Serious: Yes (Life-Threatening)
  Sender: FDA-Public Use
  Company Number: GXKR2007HU01351

PATIENT
  Age: 70 Year
  Sex: Male
  Weight: 91 kg

DRUGS (1)
  1. CO-ENALAPRIL HEXAL [Suspect]
     Indication: HYPERTENSION
     Dosage: 1 DF/DAY, ORAL
     Route: 048
     Dates: start: 20070114, end: 20070118

REACTIONS (5)
  - DIZZINESS [None]
  - DRUG INEFFECTIVE [None]
  - HEADACHE [None]
  - HYPERTENSION [None]
  - MALAISE [None]
